FAERS Safety Report 7153351-4 (Version None)
Quarter: 2010Q4

REPORT INFORMATION
  Report Type: 
  Country: None (occurrence: None)
  Receive Date: 20101213
  Receipt Date: 20101210
  Transmission Date: 20110411
  Serious: Yes (Hospitalization)
  Sender: FDA-Public Use
  Company Number: FR-ROCHE-747298

PATIENT
  Sex: Male

DRUGS (4)
  1. ROCEPHIN [Suspect]
     Indication: UROSEPSIS
     Route: 065
     Dates: start: 20090728
  2. GENTAMICINE [Suspect]
     Indication: UROSEPSIS
     Route: 065
     Dates: start: 20090728
  3. AUGMENTIN [Suspect]
     Indication: UROSEPSIS
     Route: 065
  4. OFLOCET [Suspect]
     Indication: UROSEPSIS
     Route: 065

REACTIONS (1)
  - RENAL FAILURE ACUTE [None]
